FAERS Safety Report 9730498 (Version 2)
Quarter: 2013Q4

REPORT INFORMATION
  Report Type: Spontaneous
  Country: US (occurrence: US)
  Receive Date: 20131202
  Receipt Date: 20131202
  Transmission Date: 20140711
  Serious: Yes (Other)
  Sender: FDA-Public Use
  Company Number: US-PFIZER INC-2013339391

PATIENT
  Sex: Male

DRUGS (3)
  1. CHANTIX [Suspect]
     Indication: SMOKING CESSATION THERAPY
     Dosage: UNK
     Dates: start: 2011
  2. CHANTIX [Suspect]
     Dosage: 1 MG, 2X/DAY
     Dates: start: 201311, end: 201311
  3. CHANTIX [Suspect]
     Dosage: 1 MG, 1X/DAY
     Dates: start: 201311

REACTIONS (3)
  - Coma [Unknown]
  - Drug dispensing error [Unknown]
  - Incorrect dose administered [Unknown]
